FAERS Safety Report 6156024-X (Version None)
Quarter: 2009Q2

REPORT INFORMATION
  Report Type: 
  Country: None (occurrence: None)
  Receive Date: 20090413
  Receipt Date: 20090413
  Transmission Date: 20091009
  Serious: No
  Sender: FDA-Public Use
  Company Number: None

PATIENT
  Age: 67 Year
  Sex: Female
  Weight: 71.2147 kg

DRUGS (1)
  1. ARIMIDEX [Suspect]
     Indication: BREAST CANCER
     Dosage: 1 MG ONCE DAILY PO
     Route: 048
     Dates: start: 20080410, end: 20090410

REACTIONS (3)
  - ALOPECIA [None]
  - BONE DENSITY DECREASED [None]
  - SPINAL DISORDER [None]
